FAERS Safety Report 9314860 (Version 1)
Quarter: 2013Q2

REPORT INFORMATION
  Report Type: Report from Study
  Country: CA (occurrence: CA)
  Receive Date: 20130529
  Receipt Date: 20130529
  Transmission Date: 20140414
  Serious: Yes (Other)
  Sender: FDA-Public Use
  Company Number: CA-ROCHE-1170355

PATIENT
  Sex: Female
  Weight: 90.7 kg

DRUGS (2)
  1. CAPECITABINE [Suspect]
     Indication: BREAST CANCER
     Route: 048
     Dates: end: 201212
  2. CYMBALTA [Concomitant]

REACTIONS (1)
  - Disease progression [Unknown]
